FAERS Safety Report 4599665-3 (Version None)
Quarter: 2005Q1

REPORT INFORMATION
  Report Type: 
  Country: None (occurrence: None)
  Receive Date: 20050304
  Receipt Date: 20050304
  Transmission Date: 20050727
  Serious: Yes (Hospitalization, Other)
  Sender: FDA-Public Use
  Company Number: None

PATIENT

DRUGS (4)
  1. DOXORUBICIN 60 MG/M2 IVP ON DAY 1, Q21D FOR 4 CYCLES [Suspect]
     Dosage: 60 MG/M2 IVP ON DAY 1, Q21D FOR 4 CYCLES
     Route: 042
     Dates: start: 20040903, end: 20041105
  2. CYCLOPHOSPHAMIDE [Suspect]
     Dosage: 600 MG/M2 IV OVER 30 MIN ON DAY 1, Q21D FOR 4 CYCLES
     Route: 042
     Dates: start: 20040903, end: 20041105
  3. TAXOL [Suspect]
     Dosage: 80 MG/M2 IV OVER 1 HR QW ON DAY 1 FOR 12 WEEKS, STARTING ON 13.
     Route: 042
     Dates: end: 20050215
  4. TAMOXIFEN 20 MG PO QD QD FOR 5 YEARS,OR AROMATASE INHIBITORS [Suspect]
     Dosage: 20 MG PO QD QD FOR 5 YEARS,OR AROMATASE INHIBITORS
     Route: 048

REACTIONS (4)
  - DYSPNOEA [None]
  - HYPOXIA [None]
  - PLEURITIC PAIN [None]
  - PYREXIA [None]
